FAERS Safety Report 11714234 (Version 2)
Quarter: 2015Q4

REPORT INFORMATION
  Report Type: Spontaneous
  Country: JP (occurrence: JP)
  Receive Date: 20151109
  Receipt Date: 20151113
  Transmission Date: 20160304
  Serious: Yes (Life-Threatening, Other)
  Sender: FDA-Public Use
  Company Number: JP-ASTRAZENECA-2015SF08038

PATIENT
  Age: 56 Year
  Sex: Male

DRUGS (2)
  1. MEROPEN [Suspect]
     Active Substance: MEROPENEM
     Indication: PNEUMONIA
     Route: 042
  2. CICLOSPORIN [Concomitant]
     Active Substance: CYCLOSPORINE
     Indication: IMMUNOSUPPRESSANT DRUG THERAPY
     Route: 065

REACTIONS (5)
  - Infectious pleural effusion [Unknown]
  - Inflammation [Recovering/Resolving]
  - Pleural effusion [Unknown]
  - Thoracic cavity drainage test abnormal [Unknown]
  - Drug eruption [Unknown]
